FAERS Safety Report 8320376-2 (Version None)
Quarter: 2012Q2

REPORT INFORMATION
  Report Type: 
  Country: None (occurrence: None)
  Receive Date: 20120430
  Receipt Date: 20120419
  Transmission Date: 20120825
  Serious: No
  Sender: FDA-Public Use
  Company Number: US-PFIZER INC-2012097770

PATIENT
  Sex: Female

DRUGS (2)
  1. NEURONTIN [Suspect]
     Indication: BACK INJURY
     Dosage: 300 MG, 3X/DAY
  2. NEURONTIN [Suspect]
     Indication: PAIN

REACTIONS (4)
  - DIZZINESS [None]
  - DIARRHOEA [None]
  - RASH [None]
  - FLATULENCE [None]
